FAERS Safety Report 6457418-5 (Version None)
Quarter: 2009Q4

REPORT INFORMATION
  Report Type: 
  Country: None (occurrence: None)
  Receive Date: 20091125
  Receipt Date: 20091116
  Transmission Date: 20100525
  Serious: Yes (Hospitalization)
  Sender: FDA-Public Use
  Company Number: DE-JNJFOC-20091104604

PATIENT
  Age: 71 Year
  Sex: Female

DRUGS (16)
  1. RISPERDAL [Suspect]
     Indication: DRUG USE FOR UNKNOWN INDICATION
     Route: 048
     Dates: start: 20090504, end: 20090512
  2. BACLOFEN [Suspect]
     Indication: DRUG USE FOR UNKNOWN INDICATION
     Route: 048
  3. MELPERON [Suspect]
     Indication: DRUG USE FOR UNKNOWN INDICATION
     Route: 048
     Dates: start: 20090505
  4. MICTONORM [Suspect]
     Indication: DRUG USE FOR UNKNOWN INDICATION
     Route: 048
  5. LYRICA [Suspect]
     Indication: DRUG USE FOR UNKNOWN INDICATION
     Route: 048
     Dates: start: 20090507, end: 20090509
  6. MADOPAR [Concomitant]
     Route: 048
     Dates: start: 20090424
  7. METAMIZOL [Concomitant]
     Route: 048
     Dates: start: 20090429
  8. METHIONIN [Concomitant]
     Route: 048
  9. INSULIN HUMAN [Concomitant]
     Route: 058
  10. EXELON [Concomitant]
     Route: 048
     Dates: start: 20090504
  11. DELIX [Concomitant]
     Route: 048
     Dates: end: 20090506
  12. ALLOPURINOL [Concomitant]
     Route: 048
  13. ASPIRIN [Concomitant]
     Route: 048
  14. METOPROLOL [Concomitant]
     Route: 048
     Dates: start: 20090507
  15. PANTOPRAZOL [Concomitant]
     Route: 048
  16. INSULIN GLULISINE [Concomitant]
     Route: 058

REACTIONS (2)
  - ALTERED STATE OF CONSCIOUSNESS [None]
  - MUSCLE TWITCHING [None]
